FAERS Safety Report 21242328 (Version 2)
Quarter: 2022Q4

REPORT INFORMATION
  Report Type: Spontaneous
  Country: US (occurrence: US)
  Receive Date: 20220823
  Receipt Date: 20221125
  Transmission Date: 20230113
  Serious: No
  Sender: FDA-Public Use
  Company Number: US-SA-SAC20220822000480

PATIENT
  Age: 33 Year
  Sex: Female
  Weight: 123.46 kg

DRUGS (2)
  1. DUPIXENT [Suspect]
     Active Substance: DUPILUMAB
     Indication: Nasal polyps
     Dosage: 300 MG, QOW
     Route: 058
     Dates: start: 202205
  2. DUPIXENT [Suspect]
     Active Substance: DUPILUMAB
     Indication: Chronic rhinosinusitis with nasal polyps

REACTIONS (10)
  - Somnolence [Recovering/Resolving]
  - Anxiety [Recovering/Resolving]
  - COVID-19 [Recovering/Resolving]
  - Ageusia [Not Recovered/Not Resolved]
  - Headache [Recovering/Resolving]
  - Feeling jittery [Recovering/Resolving]
  - Photophobia [Recovering/Resolving]
  - Taste disorder [Recovering/Resolving]
  - Parosmia [Recovering/Resolving]
  - Dizziness [Recovering/Resolving]

NARRATIVE: CASE EVENT DATE: 20220101
